FAERS Safety Report 14315390 (Version 3)
Quarter: 2018Q4

REPORT INFORMATION
  Report Type: Spontaneous
  Country: US (occurrence: US)
  Receive Date: 20171221
  Receipt Date: 20181219
  Transmission Date: 20190204
  Serious: Yes (Hospitalization)
  Sender: FDA-Public Use
  Company Number: US-VERTEX PHARMACEUTICALS-2017-007113

PATIENT
  Age: 5 Year
  Sex: Male

DRUGS (8)
  1. AQUADEKS                           /07679501/ [Concomitant]
     Active Substance: MINERALS\VITAMINS
  2. KALYDECO [Suspect]
     Active Substance: IVACAFTOR
     Dosage: 150 MG (FREQUENCY UNSPECIFIED)
     Route: 048
     Dates: start: 20180112
  3. KALYDECO [Suspect]
     Active Substance: IVACAFTOR
     Indication: CYSTIC FIBROSIS
     Dosage: 75 MG, BID
     Route: 048
     Dates: start: 20150415
  4. PULMOZYME [Concomitant]
     Active Substance: DORNASE ALFA
  5. RANITIDINE. [Concomitant]
     Active Substance: RANITIDINE
  6. PROAIR HFA [Concomitant]
     Active Substance: ALBUTEROL SULFATE
  7. SODIUM CHLORIDE. [Concomitant]
     Active Substance: SODIUM CHLORIDE
  8. CREON [Concomitant]
     Active Substance: PANCRELIPASE AMYLASE\PANCRELIPASE LIPASE\PANCRELIPASE PROTEASE

REACTIONS (2)
  - Infective pulmonary exacerbation of cystic fibrosis [Unknown]
  - Cough [Unknown]

NARRATIVE: CASE EVENT DATE: 20171218
